FAERS Safety Report 5464214-4 (Version None)
Quarter: 2007Q3

REPORT INFORMATION
  Report Type: 
  Country: None (occurrence: None)
  Receive Date: 20070921
  Receipt Date: 20070920
  Transmission Date: 20080115
  Serious: Yes (Congenital Anomaly, Other)
  Sender: FDA-Public Use
  Company Number: US-BRISTOL-MYERS SQUIBB COMPANY-13543053

PATIENT
  Sex: Male
  Weight: 3 kg

DRUGS (3)
  1. VIDEX [Suspect]
     Route: 064
  2. ZERIT [Suspect]
     Route: 064
  3. VIRACEPT [Suspect]
     Route: 064

REACTIONS (2)
  - HYPOSPADIAS [None]
  - PREGNANCY [None]
